FAERS Safety Report 6470051-4 (Version None)
Quarter: 2009Q4

REPORT INFORMATION
  Report Type: 
  Country: None (occurrence: None)
  Receive Date: 20091203
  Receipt Date: 20080811
  Transmission Date: 20100525
  Serious: Yes (Hospitalization, Disabling)
  Sender: FDA-Public Use
  Company Number: GB-ELI_LILLY_AND_COMPANY-GB200710002097

PATIENT
  Sex: Female
  Weight: 49 kg

DRUGS (9)
  1. FORTEO [Suspect]
     Indication: OSTEOPOROSIS
     Dosage: 20 MG, UNKNOWN
     Route: 065
     Dates: start: 20060901
  2. QUININE SULPHATE [Concomitant]
     Dosage: 300 MG, DAILY (1/D)
     Route: 065
  3. ALBUTEROL [Concomitant]
     Dosage: UNK, UNKNOWN
  4. ADCAL [Concomitant]
     Dosage: UNK, 3/D
     Route: 065
  5. BETAHISTINE [Concomitant]
     Dosage: 16 MG, 3/D
     Route: 065
  6. MEBEVERINE [Concomitant]
     Dosage: 35 MG, 3/D
     Route: 065
  7. LANSOPRAZOLE [Concomitant]
     Dosage: 30 MG, DAILY (1/D)
     Route: 065
  8. METOCLOPRAMIDE [Concomitant]
     Dosage: 10 MG, 3/D
     Route: 065
  9. CALGEL [Concomitant]
     Dosage: UNK, UNKNOWN

REACTIONS (3)
  - DIZZINESS [None]
  - FALL [None]
  - FEMUR FRACTURE [None]
